FAERS Safety Report 9522782 (Version 1)
Quarter: 2013Q3

REPORT INFORMATION
  Report Type: Report from Study
  Country: AR (occurrence: AR)
  Receive Date: 20130913
  Receipt Date: 20130913
  Transmission Date: 20140515
  Serious: Yes (Other)
  Sender: FDA-Public Use
  Company Number: PHHY2013AR101596

PATIENT
  Sex: Female

DRUGS (3)
  1. DIOVAN D [Suspect]
     Dosage: 1 DF, (160/ 25 MG)
     Route: 048
     Dates: end: 201306
  2. DIOVAN D [Suspect]
     Dosage: 1 DF, (160/ 25 MG)
     Route: 048
     Dates: end: 201308
  3. DIOVAN D [Suspect]
     Dosage: 1 DF, (160/ 25 MG)
     Route: 048

REACTIONS (2)
  - Renal cyst [Recovering/Resolving]
  - Renal failure [Recovering/Resolving]
